FAERS Safety Report 23695950 (Version 1)
Quarter: 2024Q2

REPORT INFORMATION
  Report Type: Spontaneous
  Country: DE (occurrence: DE)
  Receive Date: 20240402
  Receipt Date: 20240402
  Transmission Date: 20240716
  Serious: Yes (Other)
  Sender: FDA-Public Use
  Company Number: DE-AMGEN-DEUNI2024060944

PATIENT
  Age: 76 Year
  Sex: Male
  Weight: 81 kg

DRUGS (4)
  1. DEXAMETHASONE [Suspect]
     Active Substance: DEXAMETHASONE
     Indication: Plasma cell myeloma
     Dosage: 40 MILLIGRAM, LINE 3 ((DRUG PAUSED))
     Route: 065
     Dates: start: 20230228, end: 20230411
  2. CARFILZOMIB [Suspect]
     Active Substance: CARFILZOMIB
     Indication: Plasma cell myeloma
     Dosage: 135 MILLIGRAM, LINE 3
     Route: 065
     Dates: end: 20230411
  3. CARFILZOMIB [Suspect]
     Active Substance: CARFILZOMIB
     Dosage: 135 MILLIGRAM, LINE 3
     Dates: start: 20230228, end: 20230314
  4. POMALIDOMIDE [Suspect]
     Active Substance: POMALIDOMIDE
     Indication: Plasma cell myeloma
     Dosage: 2 MILLIGRAM, LINE 3 (DOSE REDUCED)
     Route: 065
     Dates: start: 20230228, end: 20230314

REACTIONS (1)
  - Pancytopenia [Recovering/Resolving]

NARRATIVE: CASE EVENT DATE: 20230314
